FAERS Safety Report 5442481-0 (Version None)
Quarter: 2007Q3

REPORT INFORMATION
  Report Type: 
  Country: None (occurrence: None)
  Receive Date: 20070904
  Receipt Date: 20070823
  Transmission Date: 20080115
  Serious: Yes (Other)
  Sender: FDA-Public Use
  Company Number: GB-PFIZER INC-2007071293

PATIENT
  Age: 45 Year
  Sex: Male
  Weight: 60 kg

DRUGS (3)
  1. VARENICLINE TABLETS [Suspect]
     Indication: SMOKING CESSATION THERAPY
     Route: 048
     Dates: start: 20070624, end: 20070705
  2. AMOXICILLIN [Concomitant]
     Indication: LOWER RESPIRATORY TRACT INFECTION
     Route: 048
     Dates: start: 20070613, end: 20070620
  3. DICLOFENAC [Concomitant]
     Indication: CHEST PAIN
     Route: 048
     Dates: start: 20070702, end: 20070704

REACTIONS (4)
  - AGGRESSION [None]
  - AGITATION [None]
  - IRRITABILITY [None]
  - VERBAL ABUSE [None]
